FAERS Safety Report 11543237 (Version 1)
Quarter: 2015Q3

REPORT INFORMATION
  Report Type: Spontaneous
  Country: US (occurrence: US)
  Receive Date: 20150923
  Receipt Date: 20150923
  Transmission Date: 20151125
  Serious: No
  Sender: FDA-Public Use
  Company Number: US-KOWA-2014S1001110

PATIENT
  Age: 76 Year
  Sex: Male

DRUGS (8)
  1. NORVASC [Concomitant]
     Active Substance: AMLODIPINE BESYLATE
     Indication: BLOOD PRESSURE MEASUREMENT
     Dosage: 2.5 MG, QD
  2. LIVALO [Suspect]
     Active Substance: PITAVASTATIN CALCIUM
     Dosage: 4 MG, QD
     Route: 048
     Dates: start: 20140830, end: 20140901
  3. LOSARTAN. [Concomitant]
     Active Substance: LOSARTAN
     Indication: BLOOD PRESSURE MEASUREMENT
  4. POTASSIUM [Concomitant]
     Active Substance: POTASSIUM
     Dosage: UNK UNK, TID
  5. LIVALO [Suspect]
     Active Substance: PITAVASTATIN CALCIUM
     Dosage: 2 MG, QD
     Route: 048
     Dates: start: 201408, end: 20140902
  6. WARFARIN [Concomitant]
     Active Substance: WARFARIN
     Indication: ANTICOAGULANT THERAPY
     Dosage: 4.5 MG, QD
  7. WARFARIN [Concomitant]
     Active Substance: WARFARIN
     Indication: CEREBROVASCULAR ACCIDENT
  8. NORVASC [Concomitant]
     Active Substance: AMLODIPINE BESYLATE
     Indication: HYPERTENSION

REACTIONS (5)
  - Pain in extremity [Recovering/Resolving]
  - Feeling jittery [Recovered/Resolved]
  - Insomnia [Recovered/Resolved]
  - Incorrect dose administered [Recovered/Resolved]
  - Nervousness [Recovered/Resolved]

NARRATIVE: CASE EVENT DATE: 201408
